FAERS Safety Report 8336850-9 (Version None)
Quarter: 2012Q2

REPORT INFORMATION
  Report Type: 
  Country: None (occurrence: None)
  Receive Date: 20120504
  Receipt Date: 20120502
  Transmission Date: 20120825
  Serious: No
  Sender: FDA-Public Use
  Company Number: US-BAYER-2012-043154

PATIENT
  Age: 41 Year
  Sex: Female

DRUGS (1)
  1. MIRENA [Suspect]
     Dosage: 20 MCG/24HR, CONT
     Route: 015
     Dates: start: 20070101, end: 20120427

REACTIONS (5)
  - NAUSEA [None]
  - DIARRHOEA [None]
  - WITHDRAWAL SYNDROME [None]
  - HEADACHE [None]
  - VOMITING [None]
